FAERS Safety Report 24026729 (Version 6)
Quarter: 2024Q3

REPORT INFORMATION
  Report Type: Report from Study
  Country: BE (occurrence: BE)
  Receive Date: 20240628
  Receipt Date: 20240710
  Transmission Date: 20241017
  Serious: No
  Sender: ROCHE
  Company Number: BE-ROCHE-3066782

PATIENT
  Age: 83 Year
  Sex: Female
  Weight: 65.5 kg

DRUGS (15)
  1. ALECTINIB [Suspect]
     Active Substance: ALECTINIB
     Indication: Lung cancer metastatic
     Route: 048
     Dates: start: 20200908
  2. ALECTINIB [Suspect]
     Active Substance: ALECTINIB
     Route: 048
     Dates: start: 20210915
  3. RAMIPRIL [Concomitant]
     Active Substance: RAMIPRIL
     Indication: Cardiomyopathy
     Route: 048
     Dates: start: 20220218, end: 20220406
  4. RAMIPRIL [Concomitant]
     Active Substance: RAMIPRIL
     Route: 048
     Dates: start: 20220407
  5. ALDACTONE [Concomitant]
     Active Substance: SPIRONOLACTONE
     Indication: Cardiomyopathy
     Route: 048
     Dates: start: 20220218
  6. EDOXABAN TOSYLATE [Concomitant]
     Active Substance: EDOXABAN TOSYLATE
     Indication: Cardiomyopathy
     Route: 048
     Dates: start: 20220218
  7. BISOPROLOL [Concomitant]
     Active Substance: BISOPROLOL\BISOPROLOL FUMARATE
     Indication: Cardiomyopathy
     Route: 048
     Dates: start: 20220407
  8. LORLATINIB [Concomitant]
     Active Substance: LORLATINIB
     Dates: start: 20230504, end: 20230828
  9. LORLATINIB [Concomitant]
     Active Substance: LORLATINIB
     Dates: start: 20230921
  10. LORLATINIB [Concomitant]
     Active Substance: LORLATINIB
     Route: 048
     Dates: start: 20230504, end: 20230828
  11. LORLATINIB [Concomitant]
     Active Substance: LORLATINIB
     Route: 048
     Dates: start: 20230921
  12. ROSUVASTATIN [Concomitant]
     Active Substance: ROSUVASTATIN
     Indication: Blood cholesterol increased
     Route: 048
     Dates: start: 20230930, end: 20240207
  13. ROSUVASTATIN [Concomitant]
     Active Substance: ROSUVASTATIN
     Route: 048
     Dates: start: 20240208
  14. BUMETANIDE [Concomitant]
     Active Substance: BUMETANIDE
     Indication: Oedema
     Route: 048
     Dates: start: 20230602
  15. JARDIANCE [Concomitant]
     Active Substance: EMPAGLIFLOZIN

REACTIONS (2)
  - Blood bilirubin increased [Recovered/Resolved]
  - Blood creatinine increased [Recovered/Resolved]

NARRATIVE: CASE EVENT DATE: 20220323
